FAERS Safety Report 10547823 (Version 1)
Quarter: 2014Q4

REPORT INFORMATION
  Report Type: Spontaneous
  Country: US (occurrence: None)
  Receive Date: 20141024
  Receipt Date: 20141024
  Transmission Date: 20150529
  Serious: Yes (Other)
  Sender: FDA-Public Use
  Company Number: None

PATIENT
  Age: 72 Year
  Sex: Female
  Weight: 62.6 kg

DRUGS (9)
  1. UNSPECIFIED HERBAL SUPPLEMENTS [Concomitant]
     Active Substance: HERBALS
  2. MULTIVITAMIN [Concomitant]
     Active Substance: VITAMINS
  3. LACTAID [Concomitant]
     Active Substance: LACTASE
  4. TOBRAMYCIN. [Suspect]
     Active Substance: TOBRAMYCIN
     Indication: BRONCHIECTASIS
     Dosage: 300 MG PER 5 ML ?TWICE DAILY?BY INHALATION
     Route: 055
     Dates: start: 20140922, end: 20141001
  5. LEVALBUTEROL [Concomitant]
     Active Substance: LEVALBUTEROL
  6. EXFORGE [Concomitant]
     Active Substance: AMLODIPINE BESYLATE\VALSARTAN
  7. PULMICORT TURBUHALER [Concomitant]
     Active Substance: BUDESONIDE
  8. EYE LUBRICANT [Suspect]
     Active Substance: POLYETHYLENE GLYCOL 400\PROPYLENE GLYCOL
  9. CRESTOR [Concomitant]
     Active Substance: ROSUVASTATIN CALCIUM

REACTIONS (3)
  - Dysphonia [None]
  - Product quality issue [None]
  - Product substitution issue [None]

NARRATIVE: CASE EVENT DATE: 20141001
